FAERS Safety Report 5218482-4 (Version None)
Quarter: 2007Q1

REPORT INFORMATION
  Report Type: 
  Country: None (occurrence: None)
  Receive Date: 20070123
  Receipt Date: 20070123
  Transmission Date: 20070707
  Serious: Yes (Hospitalization)
  Sender: FDA-Public Use
  Company Number: None

PATIENT
  Sex: Female
  Weight: 83.6 kg

DRUGS (3)
  1. CYCLOPHOSPHAMIDE [Suspect]
     Dosage: 7840 MG
  2. DOXORUBICIN HYDROCHLORIDE [Suspect]
     Dosage: 784 MG
  3. NEULASTA [Suspect]
     Dosage: 42 MG

REACTIONS (11)
  - BLOOD CULTURE POSITIVE [None]
  - CULTURE URINE POSITIVE [None]
  - ESCHERICHIA INFECTION [None]
  - FLUID OVERLOAD [None]
  - HYPOTENSION [None]
  - LUNG INFILTRATION [None]
  - MULTI-ORGAN FAILURE [None]
  - PYREXIA [None]
  - RESPIRATORY DISORDER [None]
  - TACHYCARDIA [None]
  - TACHYPNOEA [None]
